FAERS Safety Report 14126062 (Version 1)
Quarter: 2017Q4

REPORT INFORMATION
  Report Type: Spontaneous
  Country: DE (occurrence: DE)
  Receive Date: 20171025
  Receipt Date: 20171025
  Transmission Date: 20180321
  Serious: Yes (Hospitalization)
  Sender: FDA-Public Use
  Company Number: DE-CELGENEUS-DEU-20171005383

PATIENT
  Age: 61 Year
  Sex: Male
  Weight: 60 kg

DRUGS (2)
  1. IMNOVID [Suspect]
     Active Substance: POMALIDOMIDE
     Route: 048
     Dates: start: 20170921, end: 20170923
  2. IMNOVID [Suspect]
     Active Substance: POMALIDOMIDE
     Indication: PLASMA CELL MYELOMA
     Route: 048
     Dates: start: 20170823, end: 20170825

REACTIONS (3)
  - Blood lactate dehydrogenase increased [Recovered/Resolved]
  - Bone pain [Recovered/Resolved]
  - Plasma cell myeloma recurrent [Recovered/Resolved]

NARRATIVE: CASE EVENT DATE: 20170825
